FAERS Safety Report 4326226-3 (Version None)
Quarter: 2004Q1

REPORT INFORMATION
  Report Type: 
  Country: None (occurrence: None)
  Receive Date: 20040323
  Receipt Date: 20040114
  Transmission Date: 20041129
  Serious: No
  Sender: FDA-Public Use
  Company Number: USA040156584

PATIENT
  Sex: Male

DRUGS (3)
  1. CIALIS [Suspect]
     Dosage: 20 MG
  2. IMITREX (SUMTRIPTAN SUCCINATE) [Concomitant]
  3. ACIPHEX [Concomitant]

REACTIONS (1)
  - SWELLING FACE [None]
